FAERS Safety Report 9241512 (Version 1)
Quarter: 2013Q1

REPORT INFORMATION
  Report Type: Spontaneous
  Country: US (occurrence: None)
  Receive Date: 20121121
  Receipt Date: 20121121
  Transmission Date: 20140127
  Serious: Yes (Hospitalization)
  Sender: FDA-Public Use
  Company Number: 12000328

PATIENT
  Age: 92 Year
  Sex: Female

DRUGS (3)
  1. JANTOVEN [Suspect]
     Indication: THROMBOSIS PROPHYLAXIS
     Route: 048
  2. METOPROLOL (METOPROLOL) [Concomitant]
  3. LOSARTAN (LOSARTAN) [Concomitant]

REACTIONS (1)
  - International normalised ratio increased [None]
